FAERS Safety Report 5447992-X (Version None)
Quarter: 2007Q3

REPORT INFORMATION
  Report Type: 
  Country: None (occurrence: None)
  Receive Date: 20070910
  Receipt Date: 20070906
  Transmission Date: 20080115
  Serious: Yes (Hospitalization)
  Sender: FDA-Public Use
  Company Number: US-BOEHRINGER INGELHEIM PHARMACEUTICALS, INC.-2007-BP-07810BP

PATIENT
  Age: 78 Year
  Sex: Male
  Weight: 170 kg

DRUGS (19)
  1. SPIRIVA [Suspect]
     Indication: CHRONIC OBSTRUCTIVE PULMONARY DISEASE
     Route: 055
     Dates: start: 20070416, end: 20070426
  2. LISINOPRIL [Suspect]
     Indication: RENAL FAILURE
     Route: 048
     Dates: end: 20070504
  3. AVAPRO [Suspect]
     Indication: DIABETES MELLITUS
     Route: 048
  4. ASCORBIC ACID [Concomitant]
     Route: 048
  5. CLONIDINE [Concomitant]
     Route: 048
  6. LISINOPRIL/AVAPRO [Concomitant]
     Indication: RENAL FAILURE
     Route: 048
  7. LISINOPRIL/AVAPRO [Concomitant]
     Indication: DIABETES MELLITUS
  8. FISH OIL [Concomitant]
  9. VITAMIN D [Concomitant]
     Route: 048
  10. LASIX [Concomitant]
     Route: 048
  11. METOPROLOL SUCCINATE [Concomitant]
     Route: 048
  12. VITAMINS [Concomitant]
  13. POTASSIUM CHLORIDE [Concomitant]
  14. SIMVASTATIN [Concomitant]
     Route: 048
  15. TERAZOSIN HCL [Concomitant]
     Route: 048
  16. THEOPHYLLINE [Concomitant]
     Route: 048
  17. TRAZODONE HCL [Concomitant]
  18. OXYGEN [Concomitant]
  19. DESYREL [Concomitant]
     Route: 048

REACTIONS (3)
  - ANGIOEDEMA [None]
  - SWOLLEN TONGUE [None]
  - TONGUE DISORDER [None]
